FAERS Safety Report 18879323 (Version 2)
Quarter: 2021Q1

REPORT INFORMATION
  Report Type: Spontaneous
  Country: US (occurrence: US)
  Receive Date: 20210211
  Receipt Date: 20210219
  Transmission Date: 20210420
  Serious: No
  Sender: FDA-Public Use
  Company Number: US-PFIZER INC-2021111825

PATIENT
  Age: 78 Year
  Sex: Male

DRUGS (1)
  1. LYRICA [Suspect]
     Active Substance: PREGABALIN
     Dosage: 300 MG, 2X/DAY (1 CAPSULE BY MOUTH TWO TIMES DAILY )
     Route: 048

REACTIONS (2)
  - Cardiac disorder [Unknown]
  - Thinking abnormal [Unknown]
